FAERS Safety Report 9351689 (Version 4)
Quarter: 2014Q3

REPORT INFORMATION
  Report Type: Spontaneous
  Country: US (occurrence: US)
  Receive Date: 20130617
  Receipt Date: 20140731
  Transmission Date: 20150326
  Serious: Yes (Hospitalization, Disabling, Other)
  Sender: FDA-Public Use
  Company Number: US-009507513-1306USA006668

PATIENT
  Sex: Female
  Weight: 112.47 kg

DRUGS (2)
  1. NUVARING [Suspect]
     Active Substance: ETHINYL ESTRADIOL\ETONOGESTREL
     Indication: MENORRHAGIA
     Dosage: UNK
     Route: 067
     Dates: start: 201105, end: 20110619
  2. NUVARING [Suspect]
     Active Substance: ETHINYL ESTRADIOL\ETONOGESTREL
     Indication: CONTRACEPTION

REACTIONS (26)
  - Packed red blood cell transfusion [Recovering/Resolving]
  - Respiratory failure [Unknown]
  - Pica [Unknown]
  - Off label use [Recovered/Resolved]
  - Menorrhagia [Unknown]
  - Thrombosis [Unknown]
  - Dilatation ventricular [Unknown]
  - Dizziness [Unknown]
  - Drug ineffective [Unknown]
  - Anaemia [Recovering/Resolving]
  - Urinary tract infection staphylococcal [Unknown]
  - Pain in extremity [Unknown]
  - Antiphospholipid antibodies positive [Unknown]
  - Deep vein thrombosis [Unknown]
  - Pruritus generalised [Unknown]
  - Lymphadenitis [Recovered/Resolved]
  - Vaginitis bacterial [Unknown]
  - Menorrhagia [Recovered/Resolved]
  - Vena cava filter insertion [Unknown]
  - Anticoagulation drug level above therapeutic [Unknown]
  - Catheter site pain [Unknown]
  - Headache [Recovered/Resolved]
  - Pulmonary embolism [Unknown]
  - Pulmonary hypertension [Unknown]
  - Menometrorrhagia [Unknown]
  - Pain in extremity [Unknown]

NARRATIVE: CASE EVENT DATE: 201105
